FAERS Safety Report 7002042-9 (Version None)
Quarter: 2010Q3

REPORT INFORMATION
  Report Type: 
  Country: None (occurrence: None)
  Receive Date: 20100920
  Receipt Date: 20100910
  Transmission Date: 20110219
  Serious: Yes (Other)
  Sender: FDA-Public Use
  Company Number: US-AMGEN-QUU430659

PATIENT
  Sex: Male

DRUGS (2)
  1. ENBREL [Suspect]
     Indication: RHEUMATOID ARTHRITIS
     Route: 058
     Dates: start: 20080101, end: 20100301
  2. PLAQUENIL [Concomitant]

REACTIONS (12)
  - APATHY [None]
  - ASTHENIA [None]
  - FATIGUE [None]
  - HAEMOGLOBIN ABNORMAL [None]
  - LEUKAEMIA [None]
  - LYMPHADENOPATHY [None]
  - NIGHT SWEATS [None]
  - PLEURAL EFFUSION [None]
  - PYREXIA [None]
  - SYSTEMIC LUPUS ERYTHEMATOSUS [None]
  - UNEVALUABLE INVESTIGATION [None]
  - WEIGHT DECREASED [None]
